FAERS Safety Report 7914079-3 (Version None)
Quarter: 2011Q4

REPORT INFORMATION
  Report Type: 
  Country: None (occurrence: None)
  Receive Date: 20111115
  Receipt Date: 20111107
  Transmission Date: 20120403
  Serious: Yes (Other)
  Sender: FDA-Public Use
  Company Number: JP-ASTELLAS-2011JP001922

PATIENT
  Age: 16 Year
  Sex: Female
  Weight: 38.5 kg

DRUGS (29)
  1. TACROLIMUS [Suspect]
     Dosage: 2 MG, BID
     Route: 048
     Dates: start: 20110218, end: 20110220
  2. TACROLIMUS [Suspect]
     Dosage: 2.5 MG, BID
     Route: 048
     Dates: start: 20110428, end: 20110525
  3. PREDNISOLONE [Concomitant]
     Dosage: 40 MG, UNKNOWN/D
     Route: 048
     Dates: start: 20110208, end: 20110215
  4. PREDNISOLONE [Concomitant]
     Dosage: 40 MG, UNKNOWN/D
     Route: 048
     Dates: start: 20110308, end: 20110322
  5. PREDNISOLONE [Concomitant]
     Dosage: 10 MG, UNKNOWN/D
     Route: 048
     Dates: start: 20110512, end: 20110601
  6. PREDNISOLONE [Concomitant]
     Dosage: 8 MG, UNKNOWN/D
     Route: 048
     Dates: start: 20110602, end: 20110615
  7. BAKTAR [Concomitant]
     Dosage: 400 MG, UNKNOWN/D
     Route: 048
     Dates: start: 20110224, end: 20110420
  8. ASACOL [Concomitant]
     Indication: COLITIS ULCERATIVE
     Dosage: 2400 MG, UNKNOWN/D
     Route: 048
  9. PREDNISOLONE [Concomitant]
     Indication: COLITIS ULCERATIVE
     Dosage: 60 MG, UNKNOWN/D
     Route: 065
     Dates: start: 20110216, end: 20110222
  10. PREDNISOLONE [Concomitant]
     Dosage: 30 MG, UNKNOWN/D
     Route: 048
     Dates: start: 20110323, end: 20110406
  11. PREDNISOLONE [Concomitant]
     Dosage: 6 MG, UNKNOWN/D
     Route: 048
     Dates: start: 20110616, end: 20110928
  12. STERONEMA [Concomitant]
     Indication: COLITIS ULCERATIVE
     Dosage: 3 MG, UNKNOWN/D
     Route: 054
     Dates: end: 20110207
  13. OMEPRAZOLE [Concomitant]
     Dosage: 20 MG, UNKNOWN/D
     Route: 048
     Dates: start: 20110208, end: 20110223
  14. RABEPRAZOLE SODIUM [Concomitant]
     Dosage: 10 MG, UNKNOWN/D
     Route: 048
     Dates: start: 20110224
  15. STERONEMA [Concomitant]
     Dosage: 3 MG, UNKNOWN/D
     Route: 054
     Dates: start: 20110704
  16. FERROUS CITRATE [Concomitant]
     Dosage: 100 MG, UNKNOWN/D
     Route: 048
     Dates: start: 20110208, end: 20110325
  17. FUNGIZONE [Concomitant]
     Dosage: 600 MG, UNKNOWN/D
     Route: 048
     Dates: start: 20110303, end: 20110406
  18. TACROLIMUS [Suspect]
     Dosage: 3 MG, BID
     Route: 048
     Dates: start: 20110314, end: 20110427
  19. PREDNISOLONE [Concomitant]
     Dosage: 15 MG, UNKNOWN/D
     Route: 048
     Dates: start: 20110428, end: 20110511
  20. TACROLIMUS [Suspect]
     Dosage: 2 MG, BID
     Route: 048
     Dates: start: 20110224, end: 20110224
  21. TACROLIMUS [Suspect]
     Dosage: 2 MG, BID
     Route: 048
     Dates: start: 20110304, end: 20110309
  22. PREDNISOLONE [Concomitant]
     Dosage: 50 MG, UNKNOWN/D
     Route: 065
     Dates: start: 20110223, end: 20110307
  23. PREDNISOLONE [Concomitant]
     Dosage: 25 MG, UNKNOWN/D
     Route: 048
     Dates: start: 20110407, end: 20110420
  24. ALENDRONATE SODIUM [Concomitant]
     Dosage: 35 MG, UNKNOWN/D
     Route: 048
     Dates: start: 20110208
  25. MAGNESIUM OXIDE [Concomitant]
     Dosage: 3000 MG, UNKNOWN/D
     Route: 048
     Dates: start: 20110407
  26. PREDNISOLONE [Concomitant]
     Dosage: 20 MG, UNKNOWN/D
     Route: 048
     Dates: start: 20110421, end: 20110427
  27. TACROLIMUS [Suspect]
     Indication: COLITIS ULCERATIVE
     Dosage: 4 MG, BID
     Route: 048
     Dates: start: 20110221, end: 20110222
  28. TACROLIMUS [Suspect]
     Dosage: 2.5 MG, BID
     Route: 048
     Dates: start: 20110225, end: 20110303
  29. TACROLIMUS [Suspect]
     Dosage: 2.5 MG, BID
     Route: 048
     Dates: start: 20110310, end: 20110313

REACTIONS (1)
  - ENTERITIS [None]
